FAERS Safety Report 9225188 (Version 2)
Quarter: 2013Q2

REPORT INFORMATION
  Report Type: Spontaneous
  Country: AT (occurrence: AT)
  Receive Date: 20130411
  Receipt Date: 20130422
  Transmission Date: 20140414
  Serious: Yes (Hospitalization, Other)
  Sender: FDA-Public Use
  Company Number: AT-ASTRAZENECA-2013SE22450

PATIENT
  Age: 979 Month
  Sex: Female

DRUGS (12)
  1. SELOKEN [Suspect]
     Route: 048
  2. BRILIQUE [Suspect]
     Indication: ACUTE MYOCARDIAL INFARCTION
     Route: 048
     Dates: start: 201201
  3. BRILIQUE [Suspect]
     Indication: PERCUTANEOUS CORONARY INTERVENTION
     Route: 048
     Dates: start: 201201
  4. BRILIQUE [Suspect]
     Indication: CORONARY ARTERIAL STENT INSERTION
     Route: 048
     Dates: start: 201201
  5. AMLODIPIN (GENERICON) [Concomitant]
  6. THROMBO ASS [Concomitant]
  7. PANTIP [Concomitant]
  8. AMARYL [Concomitant]
  9. AMARYL [Concomitant]
  10. SORTIS [Concomitant]
  11. METFORMIN (GENERICON) [Concomitant]
  12. DANCOR [Concomitant]

REACTIONS (7)
  - Angina pectoris [Unknown]
  - Coronary artery disease [Unknown]
  - Mitral valve incompetence [Unknown]
  - Ejection fraction decreased [Unknown]
  - Hypertension [Unknown]
  - Dyslipidaemia [Unknown]
  - Type 2 diabetes mellitus [Unknown]
